FAERS Safety Report 14338399 (Version 1)
Quarter: 2017Q4

REPORT INFORMATION
  Report Type: Spontaneous
  Country: JP (occurrence: JP)
  Receive Date: 20171229
  Receipt Date: 20171229
  Transmission Date: 20180321
  Serious: Yes (Hospitalization)
  Sender: FDA-Public Use
  Company Number: JP-ARBOR PHARMACEUTICALS, LLC-JP-2017ARB001074

PATIENT
  Age: 66 Year
  Sex: Male

DRUGS (2)
  1. GLIADEL [Suspect]
     Active Substance: CARMUSTINE
     Dosage: (7.7MG, 8 TOTAL)
  2. GLIADEL [Suspect]
     Active Substance: CARMUSTINE
     Indication: GLIOBLASTOMA
     Dosage: (7.7 MG, 8 TOTAL)
     Dates: start: 20160701

REACTIONS (1)
  - Cyst [Recovered/Resolved]
